FAERS Safety Report 6031113-9 (Version None)
Quarter: 2008Q4

REPORT INFORMATION
  Report Type: 
  Country: None (occurrence: None)
  Receive Date: 20081222
  Receipt Date: 20081118
  Transmission Date: 20090506
  Serious: No
  Sender: FDA-Public Use
  Company Number: US-WYE-H06908308

PATIENT
  Age: 40 Year
  Sex: Female

DRUGS (2)
  1. PRISTIQ (DESVENLAFAXINE SUCCINATE MONOHYDRATE [Suspect]
     Indication: MAJOR DEPRESSION
     Dosage: 50 MG 1X PER 1 DAY, ORAL
     Route: 048
     Dates: start: 20080718
  2. ZYPREXA [Concomitant]

REACTIONS (3)
  - CONSTIPATION [None]
  - HEADACHE [None]
  - NASAL CONGESTION [None]
